FAERS Safety Report 20828267 (Version 3)
Quarter: 2022Q2

REPORT INFORMATION
  Report Type: Spontaneous
  Country: US (occurrence: US)
  Receive Date: 20220513
  Receipt Date: 20220520
  Transmission Date: 20220721
  Serious: Yes (Other)
  Sender: FDA-Public Use
  Company Number: US-SA-SAC20220509001636

PATIENT
  Age: 54 Year
  Sex: Female

DRUGS (28)
  1. DUPIXENT [Suspect]
     Active Substance: DUPILUMAB
     Indication: Nasal polyps
     Dosage: 300 MG, QOW
     Route: 058
  2. DROXIDOPA [Concomitant]
     Active Substance: DROXIDOPA
     Indication: Hypotension
  3. MODERNA COVID-19 VACCINE [Concomitant]
     Active Substance: ELASOMERAN
     Indication: Immunisation
     Dosage: UNK
  4. MODERNA COVID-19 VACCINE [Concomitant]
     Active Substance: ELASOMERAN
     Dosage: UNK
  5. TIZANIDINE HYDROCHLORIDE [Concomitant]
     Active Substance: TIZANIDINE HYDROCHLORIDE
  6. SERTRALINE HYDROCHLORIDE [Concomitant]
     Active Substance: SERTRALINE HYDROCHLORIDE
  7. RYTARY [Concomitant]
     Active Substance: CARBIDOPA\LEVODOPA
     Dosage: UNK
  8. PROAIR HFA [Concomitant]
     Active Substance: ALBUTEROL SULFATE
  9. METHIMAZOLE [Concomitant]
     Active Substance: METHIMAZOLE
  10. MELATONIN [Concomitant]
     Active Substance: MELATONIN
  11. HIZENTRA [Concomitant]
     Active Substance: HUMAN IMMUNOGLOBULIN G
  12. ALLEGRA ALLERGY [Concomitant]
     Active Substance: FEXOFENADINE HYDROCHLORIDE
  13. ESTRADIOL [Concomitant]
     Active Substance: ESTRADIOL
  14. CRANBERRY [Concomitant]
     Active Substance: CRANBERRY
  15. COLACE [Concomitant]
     Active Substance: DOCUSATE SODIUM
  16. CALCIUM\CHOLECALCIFEROL [Concomitant]
     Active Substance: CALCIUM\CHOLECALCIFEROL
     Dosage: FORMULATION: TABLET ER
  17. CLONAZEPAM [Concomitant]
     Active Substance: CLONAZEPAM
  18. BUDESONIDE [Concomitant]
     Active Substance: BUDESONIDE
  19. BREO ELLIPTA [Concomitant]
     Active Substance: FLUTICASONE FUROATE\VILANTEROL TRIFENATATE
  20. AMITIZA [Concomitant]
     Active Substance: LUBIPROSTONE
  21. AMANTADINE [Concomitant]
     Active Substance: AMANTADINE
  22. AUVI-Q [Concomitant]
     Active Substance: EPINEPHRINE
  23. VITAMIN C [Concomitant]
     Active Substance: ASCORBIC ACID
  24. B12 ACTIVE [Concomitant]
  25. MELATONIN [Concomitant]
     Active Substance: MELATONIN
  26. PROBIOTICS [BIFIDOBACTERIUM LONGUM;LACTOBACILLUS ACIDOPHILUS;LACTOBACI [Concomitant]
  27. MIDODRINE HYDROCHLORIDE [Concomitant]
     Active Substance: MIDODRINE HYDROCHLORIDE
     Indication: Hypotension
  28. FLUDROCORTISONE ACETATE [Concomitant]
     Active Substance: FLUDROCORTISONE ACETATE
     Indication: Hypotension

REACTIONS (4)
  - Loss of consciousness [Unknown]
  - Hypotension [Unknown]
  - Hypokinesia [Unknown]
  - Product use in unapproved indication [Unknown]
